FAERS Safety Report 23689345 (Version 1)
Quarter: 2024Q1

REPORT INFORMATION
  Report Type: Report from Study
  Country: GB (occurrence: GB)
  Receive Date: 20240331
  Receipt Date: 20240331
  Transmission Date: 20240409
  Serious: Yes (Other)
  Sender: FDA-Public Use
  Company Number: GB-SAMSUNG BIOEPIS-SB-2024-09031

PATIENT
  Age: 49 Year
  Sex: Female
  Weight: 105.4 kg

DRUGS (3)
  1. ETANERCEPT [Suspect]
     Active Substance: ETANERCEPT
     Indication: Psoriasis
     Dates: start: 20171013, end: 20210323
  2. ETANERCEPT [Suspect]
     Active Substance: ETANERCEPT
     Dates: start: 20160708, end: 20161015
  3. IRON [Concomitant]
     Active Substance: IRON
     Indication: Product used for unknown indication
     Route: 065
     Dates: start: 20190328

REACTIONS (2)
  - Endometrial cancer [Not Recovered/Not Resolved]
  - Cervix carcinoma [Not Recovered/Not Resolved]

NARRATIVE: CASE EVENT DATE: 20210219
